FAERS Safety Report 8495331-2 (Version None)
Quarter: 2012Q3

REPORT INFORMATION
  Report Type: 
  Country: None (occurrence: None)
  Receive Date: 20120709
  Receipt Date: 20120628
  Transmission Date: 20120928
  Serious: Yes (Other)
  Sender: FDA-Public Use
  Company Number: BR-ASTRAZENECA-2012SE44867

PATIENT
  Age: 82 Year
  Sex: Male

DRUGS (5)
  1. AMIODARONE HYDROCHLORIDE [Concomitant]
     Indication: HYPERTENSION
     Route: 048
  2. CRESTOR [Suspect]
     Route: 048
     Dates: start: 20120501
  3. DIOVAN [Concomitant]
     Indication: HYPERTENSION
     Route: 048
  4. NORVASC [Concomitant]
     Indication: HYPERTENSION
     Route: 048
  5. CRESTOR [Suspect]
     Indication: BLOOD CHOLESTEROL INCREASED
     Route: 048
     Dates: end: 20120501

REACTIONS (1)
  - TRANSIENT ISCHAEMIC ATTACK [None]
